FAERS Safety Report 10018933 (Version 1)
Quarter: 2014Q1

REPORT INFORMATION
  Report Type: Spontaneous
  Country: US (occurrence: US)
  Receive Date: 20140318
  Receipt Date: 20140318
  Transmission Date: 20141002
  Serious: Yes (Other)
  Sender: FDA-Public Use
  Company Number: US-GLAXOSMITHKLINE-A1064336A

PATIENT
  Age: 47 Year
  Sex: Male

DRUGS (2)
  1. VOTRIENT [Suspect]
     Indication: RENAL CELL CARCINOMA
     Dosage: 600MG PER DAY
     Route: 048
     Dates: start: 20130315, end: 20140307
  2. NO CONCURRENT MEDICATION [Concomitant]

REACTIONS (3)
  - Renal cancer [Unknown]
  - Metastases to bone [Unknown]
  - Drug ineffective [Unknown]
